FAERS Safety Report 9441760 (Version 1)
Quarter: 2013Q3

REPORT INFORMATION
  Report Type: Spontaneous
  Country: GB (occurrence: GB)
  Receive Date: 20130806
  Receipt Date: 20130806
  Transmission Date: 20140515
  Serious: Yes (Death)
  Sender: FDA-Public Use
  Company Number: GB-ABBOTT-13X-167-1128642-00

PATIENT
  Sex: Female

DRUGS (1)
  1. CREON [Suspect]
     Indication: PRODUCT USED FOR UNKNOWN INDICATION
     Dosage: CREON 10,000

REACTIONS (4)
  - Cystic fibrosis [Fatal]
  - Constipation [Unknown]
  - Abdominal distension [Unknown]
  - Unevaluable event [Unknown]
